FAERS Safety Report 6493786-6 (Version None)
Quarter: 2009Q4

REPORT INFORMATION
  Report Type: 
  Country: None (occurrence: None)
  Receive Date: 20091214
  Receipt Date: 20081103
  Transmission Date: 20100525
  Serious: No
  Sender: FDA-Public Use
  Company Number: US-BRISTOL-MYERS SQUIBB COMPANY-14393458

PATIENT
  Age: 13 Year
  Sex: Male
  Weight: 91 kg

DRUGS (5)
  1. ABILIFY [Suspect]
     Indication: ATTENTION DEFICIT/HYPERACTIVITY DISORDER
     Dosage: STARTED WITH 10 MG THEN INCREASED TO 30 MG TWO YEARS AGO.
  2. ABILIFY [Suspect]
     Indication: OPPOSITIONAL DEFIANT DISORDER
     Dosage: STARTED WITH 10 MG THEN INCREASED TO 30 MG TWO YEARS AGO.
  3. ABILIFY [Suspect]
     Indication: ANXIETY
     Dosage: STARTED WITH 10 MG THEN INCREASED TO 30 MG TWO YEARS AGO.
  4. ABILIFY [Suspect]
     Indication: DEPRESSION
     Dosage: STARTED WITH 10 MG THEN INCREASED TO 30 MG TWO YEARS AGO.
  5. CONCERTA [Concomitant]

REACTIONS (1)
  - WEIGHT INCREASED [None]
